FAERS Safety Report 9264038 (Version 3)
Quarter: 2013Q2

REPORT INFORMATION
  Report Type: Spontaneous
  Country: JP (occurrence: JP)
  Receive Date: 20130430
  Receipt Date: 20130515
  Transmission Date: 20140414
  Serious: Yes (Other)
  Sender: FDA-Public Use
  Company Number: JP-UCBSA-084561

PATIENT
  Sex: 0

DRUGS (1)
  1. NEUPRO [Suspect]
     Dosage: DAILY DOSE-2.25 MG; TOPICAL ODT
     Route: 061
     Dates: start: 20130416, end: 20130416

REACTIONS (2)
  - Application site pruritus [Unknown]
  - Parosmia [Unknown]
